FAERS Safety Report 10308955 (Version 2)
Quarter: 2014Q3

REPORT INFORMATION
  Report Type: Spontaneous
  Country: US (occurrence: US)
  Receive Date: 20140716
  Receipt Date: 20140716
  Transmission Date: 20150326
  Serious: Yes (Other)
  Sender: FDA-Public Use
  Company Number: US-JNJFOC-20140613792

PATIENT
  Sex: Female
  Weight: 40.37 kg

DRUGS (15)
  1. TOPAMAX [Suspect]
     Active Substance: TOPIRAMATE
     Indication: RADICULAR PAIN
     Route: 048
     Dates: end: 20140629
  2. TOPIRAMATE. [Suspect]
     Active Substance: TOPIRAMATE
     Indication: PAIN MANAGEMENT
     Route: 048
     Dates: end: 2014
  3. CARBATROL [Concomitant]
     Active Substance: CARBAMAZEPINE
     Indication: RADICULAR PAIN
     Route: 065
     Dates: start: 2005
  4. CYMBALTA [Concomitant]
     Active Substance: DULOXETINE HYDROCHLORIDE
     Indication: PAIN MANAGEMENT
     Route: 065
     Dates: start: 2005
  5. TOPIRAMATE. [Suspect]
     Active Substance: TOPIRAMATE
     Indication: PAIN MANAGEMENT
     Route: 048
     Dates: start: 2014
  6. TYLENOL [Concomitant]
     Active Substance: ACETAMINOPHEN
     Indication: PAIN MANAGEMENT
     Route: 065
  7. AREDS II FORMULA [Concomitant]
     Indication: MACULAR DEGENERATION
     Route: 048
     Dates: start: 201403
  8. LYRICA [Concomitant]
     Active Substance: PREGABALIN
     Indication: RADICULAR PAIN
     Route: 065
     Dates: start: 2005
  9. LYRICA [Concomitant]
     Active Substance: PREGABALIN
     Indication: FIBROMYALGIA
     Route: 065
     Dates: start: 2005
  10. OSTEO BI-FLEX [Concomitant]
     Active Substance: CHONDROITIN SULFATE A\GLUCOSAMINE
     Indication: MINERAL SUPPLEMENTATION
     Route: 065
  11. CALTRATE [Concomitant]
     Active Substance: CALCIUM CARBONATE
     Indication: OSTEOPOROSIS
     Route: 065
  12. CYMBALTA [Concomitant]
     Active Substance: DULOXETINE HYDROCHLORIDE
     Indication: ARTHRITIS
     Route: 065
     Dates: start: 2005
  13. CALCIUM [Concomitant]
     Active Substance: CALCIUM
     Indication: MINERAL SUPPLEMENTATION
     Route: 065
  14. TOPIRAMATE. [Suspect]
     Active Substance: TOPIRAMATE
     Indication: PAIN MANAGEMENT
     Route: 048
     Dates: start: 2014, end: 2014
  15. OSTEO BI-FLEX [Concomitant]
     Active Substance: CHONDROITIN SULFATE A\GLUCOSAMINE
     Indication: ARTHRITIS
     Route: 065

REACTIONS (3)
  - Off label use [Unknown]
  - Glaucoma [Unknown]
  - Blindness [Recovered/Resolved]
